FAERS Safety Report 13011912 (Version 1)
Quarter: 2016Q4

REPORT INFORMATION
  Report Type: Spontaneous
  Country: RO (occurrence: RO)
  Receive Date: 20161209
  Receipt Date: 20161209
  Transmission Date: 20170207
  Serious: Yes (Hospitalization)
  Sender: FDA-Public Use
  Company Number: RO-ROCHE-1865626

PATIENT
  Sex: Female

DRUGS (4)
  1. AVASTIN [Suspect]
     Active Substance: BEVACIZUMAB
     Indication: COLON CANCER
     Route: 065
  2. OXALIPLATIN. [Suspect]
     Active Substance: OXALIPLATIN
     Indication: COLON CANCER
     Route: 065
  3. 5-FLUOROURACIL [Suspect]
     Active Substance: FLUOROURACIL
     Indication: COLON CANCER
     Route: 065
  4. LEUCOVORIN. [Suspect]
     Active Substance: LEUCOVORIN
     Indication: COLON CANCER
     Route: 065

REACTIONS (3)
  - Chorea [Unknown]
  - Malaise [Unknown]
  - Confusional state [Unknown]
